FAERS Safety Report 25145057 (Version 3)
Quarter: 2025Q4

REPORT INFORMATION
  Report Type: Spontaneous
  Country: US (occurrence: US)
  Receive Date: 20250401
  Receipt Date: 20251031
  Transmission Date: 20260117
  Serious: No
  Sender: GLAND PHARMA LTD
  Company Number: US-GLANDPHARMA-US-2025GLNSPO00753

PATIENT
  Age: 54 Year
  Sex: Female

DRUGS (2)
  1. CYANOCOBALAMIN [Suspect]
     Active Substance: CYANOCOBALAMIN
     Indication: Pernicious anaemia
     Dosage: 1000 MCG/ML
     Route: 065
     Dates: start: 20250305
  2. CYANOCOBALAMIN [Suspect]
     Active Substance: CYANOCOBALAMIN

REACTIONS (5)
  - Injection site pain [Recovered/Resolved]
  - Injection site discolouration [Recovered/Resolved]
  - Headache [Recovered/Resolved]
  - Injection site extravasation [Recovered/Resolved]
  - Product substitution issue [Unknown]

NARRATIVE: CASE EVENT DATE: 20250305
